FAERS Safety Report 10393987 (Version 1)
Quarter: 2014Q3

REPORT INFORMATION
  Report Type: Spontaneous
  Country: BR (occurrence: BR)
  Receive Date: 20140819
  Receipt Date: 20140819
  Transmission Date: 20150326
  Serious: Yes (Hospitalization)
  Sender: FDA-Public Use
  Company Number: BR-MERCK-1408BRA010091

PATIENT
  Age: 48 Year
  Sex: Female
  Weight: 58 kg

DRUGS (7)
  1. PEGINTRON [Suspect]
     Active Substance: PEGINTERFERON ALFA-2B
     Indication: HEPATITIS C
     Dosage: 180 MICROGRAM, UNK
     Route: 058
     Dates: start: 2012, end: 2012
  2. PEGINTRON [Suspect]
     Active Substance: PEGINTERFERON ALFA-2B
     Dosage: 100 MICROGRAM, QW
     Route: 058
     Dates: start: 20140404, end: 20140805
  3. RIBAVIRIN. [Concomitant]
     Active Substance: RIBAVIRIN
     Indication: HEPATITIS C
     Dosage: UNK
     Dates: start: 2012, end: 2012
  4. TELAPREVIR [Concomitant]
     Active Substance: TELAPREVIR
     Indication: HEPATITIS C
     Dosage: 3 DF, QAM AND 3 DF QPM
     Route: 048
     Dates: start: 20140404, end: 20140805
  5. RIBAVIRIN. [Concomitant]
     Active Substance: RIBAVIRIN
     Dosage: 500 MG, QAM AND 500 MG QPM
     Route: 048
     Dates: start: 20140404, end: 20140805
  6. RIBAVIRIN. [Concomitant]
     Active Substance: RIBAVIRIN
     Dosage: 500 MG, QAM AND 500 MG QPM
     Route: 048
     Dates: start: 20140404, end: 20140805
  7. TELAPREVIR [Concomitant]
     Active Substance: TELAPREVIR
     Dosage: 3 DF, QAM AND 3 DF QPM
     Route: 048
     Dates: start: 20140404, end: 20140805

REACTIONS (3)
  - Hernia repair [Recovered/Resolved]
  - Drug ineffective [Unknown]
  - Drug ineffective [Unknown]

NARRATIVE: CASE EVENT DATE: 2012
